FAERS Safety Report 23436064 (Version 1)
Quarter: 2024Q1

REPORT INFORMATION
  Report Type: Spontaneous
  Country: CO (occurrence: CO)
  Receive Date: 20240124
  Receipt Date: 20240124
  Transmission Date: 20240410
  Serious: Yes (Other)
  Sender: FDA-Public Use
  Company Number: CO-OCTA-WIL00524

PATIENT
  Sex: Female

DRUGS (1)
  1. WILATE - VON WILLEBRAND FACTOR/COAGULATION FACTOR VIII COMPLEX (HUMAN) [Suspect]
     Active Substance: HUMAN COAGULATION FACTOR VIII/VON WILLEBRAND FACTOR COMPLEX
     Indication: Factor VIII deficiency
     Route: 042
     Dates: start: 20201201

REACTIONS (3)
  - Dyspnoea [Unknown]
  - Skin discolouration [Unknown]
  - Syncope [Unknown]

NARRATIVE: CASE EVENT DATE: 20231212
